FAERS Safety Report 5052455-X (Version None)
Quarter: 2006Q3

REPORT INFORMATION
  Report Type: 
  Country: None (occurrence: None)
  Receive Date: 20060717
  Receipt Date: 20060405
  Transmission Date: 20061208
  Serious: No
  Sender: FDA-Public Use
  Company Number: US-BRISTOL-MYERS SQUIBB COMPANY-13338314

PATIENT
  Age: 67 Year
  Sex: Female
  Weight: 109 kg

DRUGS (5)
  1. ESTRACE [Suspect]
  2. MAXZIDE [Concomitant]
  3. CLONIDINE [Concomitant]
  4. PAMELOR [Concomitant]
  5. TOPROL-XL [Concomitant]
     Indication: HYPERTENSION

REACTIONS (2)
  - DRUG INEFFECTIVE [None]
  - FATIGUE [None]
